FAERS Safety Report 12984159 (Version 3)
Quarter: 2017Q4

REPORT INFORMATION
  Report Type: Spontaneous
  Country: JP (occurrence: JP)
  Receive Date: 20161129
  Receipt Date: 20171229
  Transmission Date: 20180320
  Serious: Yes (Death, Life-Threatening)
  Sender: FDA-Public Use
  Company Number: JP-PFIZER INC-2016551471

PATIENT
  Age: 2 Year
  Sex: Male
  Weight: 11.5 kg

DRUGS (1)
  1. NIFEDIPINE. [Suspect]
     Active Substance: NIFEDIPINE
     Dosage: 40 MG, UNK (280 MG OF NIFEDIPINE MAY HAVE BEEN INGESTED AT MAXIMUM)
     Route: 048

REACTIONS (4)
  - Accidental exposure to product by child [Fatal]
  - Cardiac arrest [Recovered/Resolved]
  - Accidental overdose [Fatal]
  - Hypotension [Unknown]
